FAERS Safety Report 16277871 (Version 1)
Quarter: 2019Q2

REPORT INFORMATION
  Report Type: Report from Study
  Country: US (occurrence: US)
  Receive Date: 20190506
  Receipt Date: 20190506
  Transmission Date: 20190711
  Serious: Yes (Hospitalization)
  Sender: FDA-Public Use
  Company Number: US-EXELIXIS-CABO-19019794

PATIENT
  Age: 64 Year
  Sex: Male
  Weight: 105.21 kg

DRUGS (1)
  1. CABOMETYX [Suspect]
     Active Substance: CABOZANTINIB S-MALATE
     Indication: MALIGNANT RESPIRATORY TRACT NEOPLASM
     Dosage: 60 MG, QD (MORNING WITHOUT FOOD)
     Dates: start: 20190313

REACTIONS (9)
  - Skin lesion [Unknown]
  - Palmar-plantar erythrodysaesthesia syndrome [Unknown]
  - Oral candidiasis [Unknown]
  - Peripheral embolism [Unknown]
  - Malignant neoplasm progression [Unknown]
  - Pneumonia [Recovering/Resolving]
  - Impaired healing [Unknown]
  - Nausea [Unknown]
  - Off label use [Unknown]

NARRATIVE: CASE EVENT DATE: 201903
